APPROVED DRUG PRODUCT: CEFAZOLIN SODIUM
Active Ingredient: CEFAZOLIN SODIUM
Strength: EQ 2GM BASE/VIAL
Dosage Form/Route: POWDER;INTRAVENOUS
Application: N211413 | Product #001
Applicant: HQ SPECIALTY PHARMA CORP
Approved: May 8, 2023 | RLD: Yes | RS: Yes | Type: RX